FAERS Safety Report 7738717-3 (Version None)
Quarter: 2011Q3

REPORT INFORMATION
  Report Type: 
  Country: None (occurrence: None)
  Receive Date: 20110908
  Receipt Date: 20110901
  Transmission Date: 20111222
  Serious: Yes (Other)
  Sender: FDA-Public Use
  Company Number: US-PFIZER INC-2011177274

PATIENT
  Sex: Female

DRUGS (15)
  1. PRISTIQ [Suspect]
     Indication: NERVOUSNESS
     Dosage: 50 MG, 1X/DAY
     Dates: start: 20110804, end: 20110818
  2. PRISTIQ [Suspect]
     Indication: DECREASED APPETITE
  3. PRISTIQ [Suspect]
     Indication: SLEEP DISORDER
  4. CYMBALTA [Suspect]
     Indication: HEADACHE
     Dosage: 4 TABLETS IN THE MORNING
     Dates: start: 20110501, end: 20110101
  5. LEXAPRO [Suspect]
     Indication: DEPRESSION
     Dosage: UNK
     Dates: start: 20110601, end: 20110803
  6. ESTRADIOL [Concomitant]
     Indication: VULVOVAGINAL PAIN
     Dosage: 0.5 MG
  7. PRISTIQ [Suspect]
     Indication: DEPRESSED MOOD
  8. CYMBALTA [Suspect]
     Indication: DEPRESSION
  9. PRISTIQ [Suspect]
     Indication: SUICIDAL IDEATION
  10. FIORICET [Suspect]
     Indication: MIGRAINE
     Dosage: UNK
  11. PRISTIQ [Suspect]
     Indication: CRYING
  12. CYMBALTA [Suspect]
     Indication: NERVOUSNESS
  13. LEXAPRO [Suspect]
     Indication: NERVOUSNESS
  14. KLONOPIN [Concomitant]
     Indication: PANIC ATTACK
     Dosage: 0.5 MG, AS NEEDED
  15. PRISTIQ [Suspect]
     Indication: DECREASED INTEREST

REACTIONS (10)
  - WEIGHT DECREASED [None]
  - CIRCUMSTANCE OR INFORMATION CAPABLE OF LEADING TO MEDICATION ERROR [None]
  - PAIN [None]
  - MICTURITION DISORDER [None]
  - DISTURBANCE IN ATTENTION [None]
  - PERSONALITY CHANGE [None]
  - DIARRHOEA [None]
  - FAECES DISCOLOURED [None]
  - ASTHENIA [None]
  - NERVOUSNESS [None]
